FAERS Safety Report 8556310-X (Version None)
Quarter: 2012Q3

REPORT INFORMATION
  Report Type: 
  Country: None (occurrence: None)
  Receive Date: 20120801
  Receipt Date: 20120730
  Transmission Date: 20120928
  Serious: Yes (Other)
  Sender: FDA-Public Use
  Company Number: US-PFIZER INC-2012184861

PATIENT
  Sex: Female
  Weight: 72.562 kg

DRUGS (3)
  1. COMBIPATCH [Concomitant]
     Indication: PREMATURE MENOPAUSE
     Dosage: UNK
  2. CHANTIX [Suspect]
     Indication: SMOKING CESSATION THERAPY
     Dosage: 0.5 MG, 1X/DAY
     Route: 048
     Dates: start: 20120716, end: 20120701
  3. CHANTIX [Suspect]
     Dosage: 1 MG, 2X/DAY
     Route: 048
     Dates: start: 20120701, end: 20120726

REACTIONS (2)
  - PANIC ATTACK [None]
  - HEART RATE INCREASED [None]
